FAERS Safety Report 22027919 (Version 1)
Quarter: 2023Q1

REPORT INFORMATION
  Report Type: Spontaneous
  Country: US (occurrence: None)
  Receive Date: 20230220
  Receipt Date: 20230220
  Transmission Date: 20230418
  Serious: Yes (Other)
  Sender: FDA-Public Use
  Company Number: None

PATIENT
  Age: 42 Year
  Sex: Female
  Weight: 90 kg

DRUGS (5)
  1. LYRICA [Suspect]
     Active Substance: PREGABALIN
     Indication: Back pain
     Dosage: FREQUENCY : TWICE A DAY;?
     Dates: start: 20230210, end: 20230217
  2. Vibryyd [Concomitant]
  3. TRAZODONE [Concomitant]
     Active Substance: TRAZODONE HYDROCHLORIDE
  4. VITAMINS [Concomitant]
     Active Substance: VITAMINS
  5. PROBIOTICS NOS [Concomitant]
     Active Substance: PROBIOTICS NOS

REACTIONS (10)
  - Abdominal pain upper [None]
  - Alopecia [None]
  - Skin ulcer [None]
  - Pustule [None]
  - Abnormal behaviour [None]
  - Feeling abnormal [None]
  - Urticaria [None]
  - Pruritus [None]
  - Impaired work ability [None]
  - Product complaint [None]

NARRATIVE: CASE EVENT DATE: 20230217
